FAERS Safety Report 8113018-2 (Version None)
Quarter: 2012Q1

REPORT INFORMATION
  Report Type: 
  Country: None (occurrence: None)
  Receive Date: 20120203
  Receipt Date: 20120123
  Transmission Date: 20120608
  Serious: Yes (Hospitalization, Other)
  Sender: FDA-Public Use
  Company Number: US-ELI_LILLY_AND_COMPANY-US201102000373

PATIENT
  Sex: Female

DRUGS (8)
  1. FORTEO [Suspect]
     Indication: OSTEOPOROSIS
     Dosage: 20 UG, DAILY (1/D)
     Route: 065
     Dates: start: 20101103
  2. NIFEDIPINE [Concomitant]
     Dosage: 30 MG, QD
  3. FORTEO [Suspect]
     Dosage: 20 UG, QD
     Route: 065
  4. LASIX [Concomitant]
     Dosage: UNK
  5. FORTEO [Suspect]
     Dosage: 20 UG, QD
     Route: 065
  6. ATENOLOL [Concomitant]
     Indication: BLOOD PRESSURE
     Dosage: 25 MG, BID
  7. PREVACID [Concomitant]
     Indication: DYSPEPSIA
     Dosage: 30 MG, PRN
     Route: 065
  8. CITRACAL + D [Concomitant]
     Dosage: UNK, BID
     Route: 065

REACTIONS (9)
  - SYNCOPE [None]
  - BLOOD ALKALINE PHOSPHATASE INCREASED [None]
  - SLEEP DISORDER [None]
  - HEART RATE IRREGULAR [None]
  - ATRIAL FIBRILLATION [None]
  - DRY MOUTH [None]
  - FEELING ABNORMAL [None]
  - DIZZINESS [None]
  - MUSCLE SPASMS [None]
